FAERS Safety Report 6725406-7 (Version None)
Quarter: 2010Q2

REPORT INFORMATION
  Report Type: 
  Country: None (occurrence: None)
  Receive Date: 20100513
  Receipt Date: 20100513
  Transmission Date: 20101027
  Serious: Yes (Other)
  Sender: FDA-Public Use
  Company Number: None

PATIENT
  Age: 50 Year
  Sex: Male
  Weight: 73.9363 kg

DRUGS (8)
  1. INTELENCE [Suspect]
     Indication: HIV INFECTION
     Dosage: 100MG TWO BID P.O.
     Route: 048
     Dates: start: 20090101, end: 20100506
  2. ISENTRESS [Concomitant]
  3. INTELLENCE [Concomitant]
  4. TRAZODONE HCL [Concomitant]
  5. XOPENEX HFA PRN WHEEZE [Concomitant]
  6. DIOVAN HCT [Concomitant]
  7. FLOVENT [Concomitant]
  8. SINGULAIR [Concomitant]

REACTIONS (4)
  - CHOKING [None]
  - COUGH [None]
  - RETCHING [None]
  - VOMITING [None]
